FAERS Safety Report 5429313-1 (Version None)
Quarter: 2007Q3

REPORT INFORMATION
  Report Type: 
  Country: None (occurrence: None)
  Receive Date: 20070829
  Receipt Date: 20070821
  Transmission Date: 20080115
  Serious: Yes (Hospitalization, Other)
  Sender: FDA-Public Use
  Company Number: PHBS2007IL13889

PATIENT
  Age: 80 Year
  Sex: Male

DRUGS (9)
  1. RHYTHMEX [Concomitant]
  2. VASODIP [Concomitant]
  3. CARDURAL [Concomitant]
  4. DILATAM [Concomitant]
  5. NOVONORM [Concomitant]
  6. GLUCOPHAGE [Concomitant]
  7. HYDRALAZINE HCL [Concomitant]
  8. DIOVAN [Suspect]
     Indication: HYPERTENSION
     Dosage: 160 MG/DAY
     Route: 048
  9. DIOVAN [Suspect]
     Dosage: 80 MG/DAY
     Route: 048

REACTIONS (3)
  - DEPRESSION [None]
  - HYPOGLYCAEMIA [None]
  - HYPONATRAEMIA [None]
